FAERS Safety Report 23890828 (Version 1)
Quarter: 2024Q2

REPORT INFORMATION
  Report Type: Spontaneous
  Country: SK (occurrence: SK)
  Receive Date: 20240523
  Receipt Date: 20240523
  Transmission Date: 20240716
  Serious: Yes (Other)
  Sender: FDA-Public Use
  Company Number: SK-002147023-NVSC2024SK105738

PATIENT

DRUGS (1)
  1. RUXOLITINIB [Suspect]
     Active Substance: RUXOLITINIB
     Indication: Myelofibrosis
     Dosage: 15 MG, BID
     Route: 065

REACTIONS (3)
  - Malignant neoplasm progression [Unknown]
  - Myelofibrosis [Unknown]
  - Acute myeloid leukaemia [Unknown]
